FAERS Safety Report 9653247 (Version 1)
Quarter: 2013Q4

REPORT INFORMATION
  Report Type: Spontaneous
  Country: US (occurrence: US)
  Receive Date: 20131029
  Receipt Date: 20131029
  Transmission Date: 20140711
  Serious: Yes (Other)
  Sender: FDA-Public Use
  Company Number: US-TEVA-440935USA

PATIENT
  Age: 70 Year
  Sex: Female

DRUGS (1)
  1. ZOLPIDEM [Suspect]

REACTIONS (4)
  - Breast cancer [Unknown]
  - Insomnia [Unknown]
  - Insomnia [Unknown]
  - Drug ineffective [Unknown]
